FAERS Safety Report 16667883 (Version 2)
Quarter: 2020Q1

REPORT INFORMATION
  Report Type: Report from Study
  Country: US (occurrence: US)
  Receive Date: 20190805
  Receipt Date: 20200122
  Transmission Date: 20200409
  Serious: Yes (Other)
  Sender: FDA-Public Use
  Company Number: US-MYLANLABS-2019M1072417

PATIENT
  Sex: Female

DRUGS (2)
  1. CLARAVIS [Suspect]
     Active Substance: ISOTRETINOIN
     Indication: CONTRACEPTION
     Dosage: UNK
  2. AMNESTEEM [Suspect]
     Active Substance: ISOTRETINOIN
     Indication: CONTRACEPTION
     Dosage: 40 MILLIGRAM, QD
     Dates: start: 20190204, end: 20190725

REACTIONS (2)
  - Pregnancy with contraceptive device [Unknown]
  - Maternal exposure during pregnancy [Recovered/Resolved]
